FAERS Safety Report 12105488 (Version 2)
Quarter: 2016Q1

REPORT INFORMATION
  Report Type: Spontaneous
  Country: JP (occurrence: JP)
  Receive Date: 20160223
  Receipt Date: 20160318
  Transmission Date: 20160526
  Serious: Yes (Life-Threatening, Hospitalization, Other)
  Sender: FDA-Public Use
  Company Number: JP-ELI_LILLY_AND_COMPANY-JP201602007411

PATIENT
  Age: 80 Year
  Sex: Male
  Weight: 52 kg

DRUGS (9)
  1. AMLODIN [Concomitant]
     Active Substance: AMLODIPINE BESYLATE
     Dosage: UNK UNK, UNKNOWN
     Route: 048
  2. LEXOTAN [Concomitant]
     Active Substance: BROMAZEPAM
     Dosage: UNK UNK, UNKNOWN
     Route: 048
  3. PRASUGREL HYDROCHLORIDE [Suspect]
     Active Substance: PRASUGREL HYDROCHLORIDE
     Indication: ANGINA PECTORIS
     Dosage: 3.75 MG, QD
     Route: 048
     Dates: start: 20160127, end: 20160211
  4. BAYASPIRIN [Concomitant]
     Active Substance: ASPIRIN
     Dosage: UNK UNK, UNKNOWN
     Route: 048
  5. COVERSYL                           /00790702/ [Concomitant]
     Active Substance: PERINDOPRIL
     Indication: PRODUCT USED FOR UNKNOWN INDICATION
     Dosage: UNK UNK, UNKNOWN
     Route: 048
     Dates: start: 20160123
  6. FLIVAS [Concomitant]
     Active Substance: NAFTOPIDIL
     Dosage: UNK UNK, UNKNOWN
     Route: 048
  7. URSO [Concomitant]
     Active Substance: URSODIOL
     Dosage: UNK UNK, UNKNOWN
     Route: 048
  8. TAKEPRON [Concomitant]
     Active Substance: LANSOPRAZOLE
     Dosage: UNK UNK, UNKNOWN
     Route: 048
  9. URIEF [Concomitant]
     Active Substance: SILODOSIN
     Dosage: UNK UNK, UNKNOWN
     Route: 048

REACTIONS (1)
  - Factor V deficiency [Recovering/Resolving]

NARRATIVE: CASE EVENT DATE: 20160209
